FAERS Safety Report 5837395-8 (Version None)
Quarter: 2008Q3

REPORT INFORMATION
  Report Type: 
  Country: None (occurrence: None)
  Receive Date: 20080731
  Receipt Date: 20080611
  Transmission Date: 20090109
  Serious: No
  Sender: FDA-Public Use
  Company Number: US200806002856

PATIENT
  Age: 63 Year
  Sex: Female
  Weight: 84.1 kg

DRUGS (6)
  1. BYETTA [Suspect]
     Indication: DIABETES MELLITUS
     Dosage: 5 UG, SUBCUTANEOUS; 10 UG, SUBCUTANEOUS
     Route: 058
     Dates: start: 20080101, end: 20080318
  2. BYETTA [Suspect]
     Indication: DIABETES MELLITUS
     Dosage: 5 UG, SUBCUTANEOUS; 10 UG, SUBCUTANEOUS
     Route: 058
     Dates: start: 20080319
  3. LANTUS [Concomitant]
  4. HUMALOG [Concomitant]
  5. . [Concomitant]
  6. . [Concomitant]

REACTIONS (9)
  - ACCIDENTAL OVERDOSE [None]
  - ASTHENIA [None]
  - DIARRHOEA [None]
  - DIZZINESS [None]
  - EYE SWELLING [None]
  - HYPERHIDROSIS [None]
  - NAUSEA [None]
  - REGURGITATION [None]
  - WEIGHT DECREASED [None]
